FAERS Safety Report 6653172-2 (Version None)
Quarter: 2010Q1

REPORT INFORMATION
  Report Type: 
  Country: None (occurrence: None)
  Receive Date: 20100326
  Receipt Date: 20100326
  Transmission Date: 20100710
  Serious: Yes (Hospitalization, Other)
  Sender: FDA-Public Use
  Company Number: PHHO2007BE09405

PATIENT
  Sex: Female
  Weight: 64 kg

DRUGS (8)
  1. ZOLEDRONIC ACID [Suspect]
     Indication: OSTEOPOROSIS POSTMENOPAUSAL
     Dosage: UNK
     Route: 042
     Dates: start: 20060227
  2. CALCIUM [Concomitant]
     Indication: OSTEOPOROSIS POSTMENOPAUSAL
  3. VITAMIN D [Concomitant]
     Indication: OSTEOPOROSIS POSTMENOPAUSAL
     Route: 042
  4. IMODIUM [Concomitant]
     Dates: start: 19930101
  5. NEROFEN [Concomitant]
     Dates: start: 19980101
  6. SIMVASTATIN [Concomitant]
  7. DIFLUCAN [Concomitant]
  8. ASAFLOW [Concomitant]
     Dates: start: 20060525

REACTIONS (7)
  - ARTERIOSCLEROSIS [None]
  - ATRIAL TACHYCARDIA [None]
  - CAROTID ARTERY STENOSIS [None]
  - CEREBROVASCULAR ACCIDENT [None]
  - CONCOMITANT DISEASE PROGRESSION [None]
  - SUPRAVENTRICULAR EXTRASYSTOLES [None]
  - VENTRICULAR EXTRASYSTOLES [None]
